FAERS Safety Report 24677821 (Version 1)
Quarter: 2024Q4

REPORT INFORMATION
  Report Type: Spontaneous
  Country: US (occurrence: US)
  Receive Date: 20241129
  Receipt Date: 20241129
  Transmission Date: 20250115
  Serious: No
  Sender: ABBVIE
  Company Number: US-ABBVIE-6016764

PATIENT
  Age: 60 Year
  Sex: Female

DRUGS (1)
  1. VRAYLAR [Suspect]
     Active Substance: CARIPRAZINE
     Indication: Major depression
     Route: 048

REACTIONS (6)
  - Loss of personal independence in daily activities [Unknown]
  - General physical health deterioration [Recovering/Resolving]
  - Depression [Recovering/Resolving]
  - Apathy [Recovering/Resolving]
  - Anhedonia [Recovering/Resolving]
  - Mobility decreased [Unknown]
